FAERS Safety Report 7733142-3 (Version None)
Quarter: 2011Q3

REPORT INFORMATION
  Report Type: 
  Country: None (occurrence: None)
  Receive Date: 20110907
  Receipt Date: 20110902
  Transmission Date: 20111222
  Serious: No
  Sender: FDA-Public Use
  Company Number: PHHY2011CA76193

PATIENT
  Sex: Female

DRUGS (9)
  1. ZOLEDRONOC ACID [Suspect]
     Dosage: 5 MG, EVERY YEAR
     Route: 042
     Dates: start: 20100930
  2. METHOTREXATE [Concomitant]
     Dosage: 10 MG,
  3. CELEXA [Concomitant]
     Dosage: 10 MG,
  4. ZOLEDRONOC ACID [Suspect]
     Indication: OSTEOPOROSIS
     Dosage: 5 MG, EVERY YEAR
     Route: 042
     Dates: start: 20090928
  5. PREDNISONE [Suspect]
     Dosage: 30 MG,
  6. VITAMIN D [Concomitant]
     Dosage: UNK UKN, UNK
  7. PREDNISONE [Suspect]
     Dosage: 10 MG,
  8. TRAMADOL HYDROCHLORIDE [Concomitant]
     Dosage: 500 MG,
  9. FOLIC ACID [Concomitant]
     Dosage: UNK UKN, UNK

REACTIONS (4)
  - VEIN DISORDER [None]
  - BLOOD PRESSURE DECREASED [None]
  - ADRENAL INSUFFICIENCY [None]
  - FATIGUE [None]
